FAERS Safety Report 8880570 (Version 2)
Quarter: 2012Q4

REPORT INFORMATION
  Report Type: Report from Study
  Country: JP (occurrence: JP)
  Receive Date: 20121101
  Receipt Date: 20121226
  Transmission Date: 20130627
  Serious: Yes (Hospitalization)
  Sender: FDA-Public Use
  Company Number: JP-ABBOTT-12P-087-0962086-00

PATIENT
  Age: 62 Year
  Sex: Male
  Weight: 47.7 kg

DRUGS (7)
  1. HUMIRA 40 MG/ 0.8 ML PRE-FILLED SYRINGE [Suspect]
     Indication: PRODUCT USED FOR UNKNOWN INDICATION
     Route: 058
     Dates: start: 20120620, end: 20120620
  2. MESALAZINE [Suspect]
     Indication: CROHN^S DISEASE
     Dates: start: 20120622
  3. POLARAMINE [Suspect]
     Indication: RASH
     Route: 048
     Dates: start: 20120702, end: 20120703
  4. ALLEGRA [Suspect]
     Indication: RASH
     Route: 048
     Dates: start: 20120704, end: 20120712
  5. CLOSTRIDIUM BUTYRICUM [Concomitant]
     Indication: CROHN^S DISEASE
     Route: 048
  6. SODIUM FERROUS CITRATE [Concomitant]
     Indication: PRODUCT USED FOR UNKNOWN INDICATION
     Route: 048
     Dates: start: 20120620
  7. HERBAL MEDICINE (DAIKENCHUTO) [Concomitant]
     Indication: CROHN^S DISEASE
     Route: 048
     Dates: start: 20120620

REACTIONS (3)
  - Platelet count decreased [Recovered/Resolved]
  - Rash [Recovered/Resolved]
  - Pruritus [Recovered/Resolved]
